FAERS Safety Report 13233988 (Version 1)
Quarter: 2017Q1

REPORT INFORMATION
  Report Type: Spontaneous
  Country: US (occurrence: US)
  Receive Date: 20170214
  Receipt Date: 20170214
  Transmission Date: 20170428
  Serious: No
  Sender: FDA-Public Use
  Company Number: None

PATIENT
  Age: 62 Year
  Sex: Female
  Weight: 92.25 kg

DRUGS (6)
  1. CALCIUM [Concomitant]
     Active Substance: CALCIUM
  2. SINGULAIR [Concomitant]
     Active Substance: MONTELUKAST SODIUM
  3. PREDNISONE. [Suspect]
     Active Substance: PREDNISONE
     Indication: DYSPNOEA
     Dosage: ?          QUANTITY:10 TABLET(S);?
     Route: 048
     Dates: start: 20170203, end: 20170208
  4. MULTI VITAMINS/MINERALS [Concomitant]
  5. XOPENEX [Concomitant]
     Active Substance: LEVALBUTEROL HYDROCHLORIDE
  6. AMLODIPINE [Concomitant]
     Active Substance: AMLODIPINE BESYLATE

REACTIONS (15)
  - Hyperhidrosis [None]
  - Asthenia [None]
  - Pain in extremity [None]
  - Dizziness [None]
  - Decreased appetite [None]
  - Tremor [None]
  - Myalgia [None]
  - Muscle spasms [None]
  - Nausea [None]
  - Constipation [None]
  - Thinking abnormal [None]
  - Urine output decreased [None]
  - Limb discomfort [None]
  - Confusional state [None]
  - Condition aggravated [None]

NARRATIVE: CASE EVENT DATE: 20170210
